FAERS Safety Report 20358824 (Version 2)
Quarter: 2022Q1

REPORT INFORMATION
  Report Type: Spontaneous
  Country: US (occurrence: US)
  Receive Date: 20220120
  Receipt Date: 20220121
  Transmission Date: 20220423
  Serious: Yes (Death, Hospitalization)
  Sender: FDA-Public Use
  Company Number: US-CELGENE-USA-20220104661

PATIENT
  Age: 73 Year
  Sex: Female

DRUGS (1)
  1. REVLIMID [Suspect]
     Active Substance: LENALIDOMIDE
     Indication: Plasma cell myeloma
     Dosage: 15 MILLIGRAM
     Route: 048
     Dates: start: 20211209, end: 20220117

REACTIONS (4)
  - Pulmonary oedema [Fatal]
  - Urinary tract infection [Fatal]
  - Septic shock [Fatal]
  - Renal failure [Fatal]

NARRATIVE: CASE EVENT DATE: 20211218
